FAERS Safety Report 11311599 (Version 1)
Quarter: 2015Q3

REPORT INFORMATION
  Report Type: Spontaneous
  Country: CZ (occurrence: CZ)
  Receive Date: 20150727
  Receipt Date: 20150727
  Transmission Date: 20151125
  Serious: Yes (Hospitalization, Other)
  Sender: FDA-Public Use
  Company Number: CZ-ACTAVIS-2015-15543

PATIENT
  Age: 48 Year
  Sex: Female

DRUGS (3)
  1. DOCETAXEL (UNKNOWN) [Suspect]
     Active Substance: DOCETAXEL
     Dosage: 1 DF, 1/ THREE WEEKS, 2 DOSES
     Route: 042
     Dates: start: 20120514
  2. TEVAGRASTIM [Concomitant]
     Active Substance: FILGRASTIM
     Indication: PROPHYLAXIS
     Dosage: UNK
     Route: 058
  3. DOCETAXEL (UNKNOWN) [Suspect]
     Active Substance: DOCETAXEL
     Indication: BREAST CANCER
     Dosage: 1 DF, 1/WEEK, 2 LOWER DOSES
     Route: 042
     Dates: end: 20120813

REACTIONS (22)
  - Insomnia [Recovering/Resolving]
  - Fatigue [Recovering/Resolving]
  - Epistaxis [Recovering/Resolving]
  - Decreased appetite [Recovering/Resolving]
  - Fine motor skill dysfunction [Recovering/Resolving]
  - Nail discolouration [Recovering/Resolving]
  - Pain [Recovering/Resolving]
  - Onycholysis [Recovering/Resolving]
  - Oral pain [Recovering/Resolving]
  - Fluid retention [Recovering/Resolving]
  - Weight increased [Recovered/Resolved]
  - Cardiac failure [Recovered/Resolved]
  - Rash [Recovering/Resolving]
  - Lacrimation increased [Recovering/Resolving]
  - Syncope [Recovered/Resolved]
  - Skin exfoliation [Recovering/Resolving]
  - Rhinorrhoea [Recovering/Resolving]
  - Dysgeusia [Recovering/Resolving]
  - Pain in extremity [Recovering/Resolving]
  - Feeling cold [Recovering/Resolving]
  - Dizziness [Recovering/Resolving]
  - Dry mouth [Recovering/Resolving]
